FAERS Safety Report 8522256-6 (Version None)
Quarter: 2012Q3

REPORT INFORMATION
  Report Type: 
  Country: None (occurrence: None)
  Receive Date: 20120719
  Receipt Date: 20120709
  Transmission Date: 20120928
  Serious: Yes (Death, Hospitalization, Other)
  Sender: FDA-Public Use
  Company Number: US-BAXTER-2012BAX010562

PATIENT
  Sex: Male

DRUGS (2)
  1. DIANEAL [Suspect]
     Indication: PERITONEAL DIALYSIS
     Route: 033
     Dates: end: 20120706
  2. INSULIN [Concomitant]

REACTIONS (5)
  - ACUTE HEPATIC FAILURE [None]
  - SEPSIS [None]
  - WOUND [None]
  - SEPTIC SHOCK [None]
  - GANGRENE [None]
